FAERS Safety Report 13389577 (Version 1)
Quarter: 2017Q1

REPORT INFORMATION
  Report Type: Spontaneous
  Country: CH (occurrence: CH)
  Receive Date: 20170330
  Receipt Date: 20170330
  Transmission Date: 20170429
  Serious: Yes (Other)
  Sender: FDA-Public Use
  Company Number: CH-JNJFOC-20170314491

PATIENT
  Sex: Male

DRUGS (2)
  1. XEPLION [Suspect]
     Active Substance: PALIPERIDONE PALMITATE
     Indication: SCHIZOPHRENIA
     Route: 030
  2. XEPLION [Suspect]
     Active Substance: PALIPERIDONE PALMITATE
     Indication: SCHIZOPHRENIA
     Dosage: 150/100 MG
     Route: 030
     Dates: start: 201607

REACTIONS (5)
  - White blood cell count increased [Unknown]
  - Treatment noncompliance [Unknown]
  - Inflammation [Unknown]
  - Libido decreased [Unknown]
  - C-reactive protein increased [Unknown]
